FAERS Safety Report 4756172-2 (Version None)
Quarter: 2005Q3

REPORT INFORMATION
  Report Type: 
  Country: None (occurrence: None)
  Receive Date: 20050829
  Receipt Date: 20050829
  Transmission Date: 20060218
  Serious: Yes (Life-Threatening, Hospitalization)
  Sender: FDA-Public Use
  Company Number: None

PATIENT
  Age: 43 Year
  Sex: Male
  Weight: 107.5 kg

DRUGS (13)
  1. ATIVAN [Suspect]
     Indication: DELIRIUM TREMENS
     Dosage: 5-12 MG  PER HOUR  INTRAVENOUS
     Route: 042
     Dates: start: 20050114, end: 20050116
  2. NEMBUTAL [Suspect]
     Indication: DELIRIUM TREMENS
     Dosage: 100 MG PRN  INTRAVENOUS
     Route: 042
     Dates: start: 20050114, end: 20050116
  3. TRILEPTAL [Concomitant]
  4. DEXAMETHASONE [Concomitant]
  5. PROTONIX [Concomitant]
  6. RISPERIDONE [Concomitant]
  7. HALOPERIDOL [Concomitant]
  8. IBUPROFEN [Concomitant]
  9. XANAX [Concomitant]
  10. THIAMINE [Concomitant]
  11. FOLIC ACID [Concomitant]
  12. DULOXETINE [Concomitant]
  13. LIBRIUM [Concomitant]

REACTIONS (3)
  - ASPIRATION [None]
  - HYPOVENTILATION [None]
  - RESPIRATORY FAILURE [None]
